FAERS Safety Report 5020018-8 (Version None)
Quarter: 2006Q2

REPORT INFORMATION
  Report Type: 
  Country: None (occurrence: None)
  Receive Date: 20060607
  Receipt Date: 20060508
  Transmission Date: 20061013
  Serious: Yes (Other)
  Sender: FDA-Public Use
  Company Number: PT-BRISTOL-MYERS SQUIBB COMPANY-13369947

PATIENT
  Sex: Female

DRUGS (3)
  1. PRAVACHOL [Suspect]
  2. CONCOR [Suspect]
  3. VALSARTAN [Suspect]

REACTIONS (11)
  - ASTHENIA [None]
  - BLOOD LACTATE DEHYDROGENASE INCREASED [None]
  - BLOOD PYRUVIC ACID INCREASED [None]
  - CARDIAC FIBRILLATION [None]
  - FACIAL PAIN [None]
  - FATIGUE [None]
  - GENERAL PHYSICAL CONDITION ABNORMAL [None]
  - MIGRAINE [None]
  - MYALGIA [None]
  - PALPITATIONS [None]
  - PRURITUS [None]
